FAERS Safety Report 4646478-X (Version None)
Quarter: 2005Q2

REPORT INFORMATION
  Report Type: 
  Country: None (occurrence: None)
  Receive Date: 20050427
  Receipt Date: 20040422
  Transmission Date: 20051028
  Serious: No
  Sender: FDA-Public Use
  Company Number: US-GLAXOSMITHKLINE-A0508092A

PATIENT
  Age: 57 Year
  Sex: Female

DRUGS (9)
  1. FLOVENT [Suspect]
     Indication: ASTHMA
     Dosage: 1PUFF TWICE PER DAY
     Route: 055
     Dates: start: 20040406
  2. COMBIVENT [Concomitant]
  3. ENDAL [Concomitant]
  4. CELEBREX [Concomitant]
  5. SYNTHROID [Concomitant]
  6. PREVACID [Concomitant]
  7. LASIX [Concomitant]
  8. FLEXERIL [Concomitant]
  9. VICODIN [Concomitant]

REACTIONS (1)
  - ORAL MUCOSAL ERUPTION [None]
